FAERS Safety Report 6642383-8 (Version None)
Quarter: 2010Q1

REPORT INFORMATION
  Report Type: 
  Country: None (occurrence: None)
  Receive Date: 20100319
  Receipt Date: 20100315
  Transmission Date: 20100710
  Serious: Yes (Hospitalization)
  Sender: FDA-Public Use
  Company Number: BR-SANOFI-AVENTIS-2009SA007296

PATIENT
  Age: 55 Year
  Sex: Female
  Weight: 80 kg

DRUGS (5)
  1. ARAVA [Suspect]
     Indication: RHEUMATOID ARTHRITIS
     Route: 048
     Dates: start: 20091017, end: 20091111
  2. METHOTREXATE [Suspect]
     Indication: RHEUMATOID ARTHRITIS
     Dosage: 4 TABLETS MONDAY/4 TABLETS TUESDAY
     Route: 048
     Dates: start: 20080101, end: 20091111
  3. NAPROXEN [Concomitant]
     Indication: RHEUMATOID ARTHRITIS
     Route: 048
     Dates: start: 20080101
  4. PREDNISOLONE [Concomitant]
     Indication: RHEUMATOID ARTHRITIS
     Route: 048
     Dates: start: 20080101
  5. SIBUTRAMINE [Concomitant]
     Route: 048
     Dates: start: 20090801

REACTIONS (6)
  - ABDOMINAL PAIN [None]
  - DIZZINESS [None]
  - LIVER INJURY [None]
  - NAUSEA [None]
  - SKIN DISCOLOURATION [None]
  - VOMITING [None]
